FAERS Safety Report 6568800-X (Version None)
Quarter: 2010Q1

REPORT INFORMATION
  Report Type: 
  Country: None (occurrence: None)
  Receive Date: 20100203
  Receipt Date: 20100128
  Transmission Date: 20100710
  Serious: Yes (Death, Other)
  Sender: FDA-Public Use
  Company Number: JP-SANOFI-AVENTIS-2010SA005182

PATIENT
  Age: 70 Year
  Sex: Male

DRUGS (1)
  1. ELPLAT [Suspect]

REACTIONS (2)
  - CEREBRAL INFARCTION [None]
  - INTERSTITIAL LUNG DISEASE [None]
